FAERS Safety Report 6456451-7 (Version None)
Quarter: 2009Q4

REPORT INFORMATION
  Report Type: 
  Country: None (occurrence: None)
  Receive Date: 20091125
  Receipt Date: 20091116
  Transmission Date: 20100525
  Serious: Yes (Hospitalization, Other)
  Sender: FDA-Public Use
  Company Number: US-ELI_LILLY_AND_COMPANY-US200911003842

PATIENT
  Sex: Male

DRUGS (8)
  1. FORTEO [Suspect]
     Dates: start: 20090809
  2. TOPROL-XL [Concomitant]
  3. ASPIRIN [Concomitant]
  4. NEXIUM [Concomitant]
  5. FUROSEMIDE [Concomitant]
  6. EFFEXOR [Concomitant]
  7. SIMVASTATIN [Concomitant]
  8. LISINOPRIL [Concomitant]

REACTIONS (4)
  - BLOOD PRESSURE FLUCTUATION [None]
  - CARDIAC DISORDER [None]
  - CARDIAC FAILURE CONGESTIVE [None]
  - FEELING ABNORMAL [None]
